FAERS Safety Report 4544780-3 (Version None)
Quarter: 2005Q1

REPORT INFORMATION
  Report Type: 
  Country: None (occurrence: None)
  Receive Date: 20050105
  Receipt Date: 20040811
  Transmission Date: 20050727
  Serious: Yes (Hospitalization)
  Sender: FDA-Public Use
  Company Number: DE-ROCHE-377521

PATIENT
  Age: 50 Year
  Sex: Female

DRUGS (8)
  1. RIBAVIRIN [Suspect]
     Indication: HEPATITIS C
     Route: 048
     Dates: start: 20040203
  2. RIBAVIRIN [Suspect]
     Dosage: THERAPY STOPPED ON 12 NOVEMBER 2204 AND RESTARTED ON 17 NOVEMBER 2004.
     Route: 048
     Dates: start: 20040811
  3. PEG-INTERFERON ALFA 2A (RO 25-8310) [Suspect]
     Indication: HEPATITIS C
     Route: 058
     Dates: start: 20040203
  4. AMANTADINE HCL [Suspect]
     Indication: HEPATITIS C
     Route: 048
     Dates: start: 20040120
  5. PANTOZOL [Concomitant]
     Dosage: FREQUENCY DESCRIBED AS 2 X 1/2 /DAY. OTHER THERAPIES: 12 AUG 2004 - ONGOING 40 MG (DOSE) WITH FREQU+
     Route: 048
     Dates: start: 20040331, end: 20040811
  6. NOVOPULMON [Concomitant]
     Dosage: FREQUENCY DESCRIBED AS 2 X 2 ^HIBE^ /DAY.
     Route: 048
     Dates: start: 20040615
  7. METOCLOPRAMIDE HYDROCHLORIDE [Concomitant]
     Route: 048
     Dates: start: 20040713, end: 20040819
  8. JODID 200 [Concomitant]
     Dosage: 200 MCG (DOSE) WITH FREQUENCY DESCRIBED AS 1 X 1 /DAY.
     Route: 048
     Dates: start: 20040819

REACTIONS (3)
  - COUGH [None]
  - DYSPNOEA [None]
  - PERTUSSIS [None]
